FAERS Safety Report 5522699-9 (Version None)
Quarter: 2007Q4

REPORT INFORMATION
  Report Type: 
  Country: None (occurrence: None)
  Receive Date: 20071120
  Receipt Date: 20071115
  Transmission Date: 20080405
  Serious: Yes (Hospitalization, Other)
  Sender: FDA-Public Use
  Company Number: US-SHR-US-2007-004285

PATIENT
  Age: 51 Year
  Sex: Female

DRUGS (1)
  1. BETASERON [Suspect]
     Indication: RELAPSING-REMITTING MULTIPLE SCLEROSIS
     Dosage: 8 MIU, EVERY 2D
     Route: 058
     Dates: start: 20061101, end: 20061228

REACTIONS (13)
  - BRONCHITIS [None]
  - FALL [None]
  - HAND FRACTURE [None]
  - INJECTION SITE DESQUAMATION [None]
  - INJECTION SITE MASS [None]
  - INTERVERTEBRAL DISC COMPRESSION [None]
  - LUNG DISORDER [None]
  - NASOPHARYNGITIS [None]
  - OSTEOARTHRITIS [None]
  - OSTEOPOROSIS [None]
  - PNEUMONIA [None]
  - RHEUMATOID ARTHRITIS [None]
  - SPINAL FRACTURE [None]
